FAERS Safety Report 5063828-3 (Version None)
Quarter: 2006Q3

REPORT INFORMATION
  Report Type: 
  Country: None (occurrence: None)
  Receive Date: 20060726
  Receipt Date: 20060726
  Transmission Date: 20061208
  Serious: Yes (Hospitalization)
  Sender: FDA-Public Use
  Company Number: None

PATIENT
  Sex: Male
  Weight: 78 kg

DRUGS (3)
  1. CYTARABINE [Suspect]
     Dosage: 1288 MG
  2. DAUNORUBICIN HCL [Suspect]
     Dosage: 498 MG
  3. G-CSF (FILGRASTIM, AMGEN) [Suspect]
     Dosage: 1500 MG

REACTIONS (25)
  - ABASIA [None]
  - AGITATION [None]
  - CAPILLARY LEAK SYNDROME [None]
  - CARDIAC FAILURE [None]
  - CARDIO-RESPIRATORY ARREST [None]
  - COUGH [None]
  - DYSPNOEA [None]
  - EXERCISE TOLERANCE DECREASED [None]
  - GENERAL PHYSICAL HEALTH DETERIORATION [None]
  - HAEMATOCRIT DECREASED [None]
  - HYPERTENSION [None]
  - HYPOTENSION [None]
  - LUNG CONSOLIDATION [None]
  - LUNG INFILTRATION [None]
  - MENTAL STATUS CHANGES [None]
  - MULTI-ORGAN FAILURE [None]
  - NIGHT SWEATS [None]
  - PLATELET COUNT DECREASED [None]
  - PLEURAL EFFUSION [None]
  - PYREXIA [None]
  - RESPIRATORY DISTRESS [None]
  - TACHYCARDIA [None]
  - TACHYPNOEA [None]
  - VENOOCCLUSIVE DISEASE [None]
  - WEIGHT DECREASED [None]
